FAERS Safety Report 6642233-X (Version None)
Quarter: 2010Q1

REPORT INFORMATION
  Report Type: 
  Country: None (occurrence: None)
  Receive Date: 20100319
  Receipt Date: 20100316
  Transmission Date: 20100710
  Serious: Yes (Death, Hospitalization)
  Sender: FDA-Public Use
  Company Number: US-ASTRAZENECA-2010SE11418

PATIENT
  Age: 96 Year
  Sex: Female
  Weight: 44.5 kg

DRUGS (4)
  1. SEROQUEL [Suspect]
     Indication: MENTAL DISORDER
     Dosage: SEROQUEL 1/2 OF LOWEST DOSE
     Route: 048
  2. SEROQUEL [Suspect]
     Dosage: SEROQUEL 1/4 OF LOWEST DOSE
     Route: 048
  3. LEVAQUIN [Concomitant]
     Indication: CYSTITIS
     Route: 042
  4. CELXIN [Concomitant]

REACTIONS (6)
  - DEMENTIA [None]
  - DRY MOUTH [None]
  - DYSPHAGIA [None]
  - FAILURE TO THRIVE [None]
  - TONGUE DISORDER [None]
  - TREMOR [None]
